FAERS Safety Report 12455807 (Version 1)
Quarter: 2016Q2

REPORT INFORMATION
  Report Type: Spontaneous
  Country: US (occurrence: None)
  Receive Date: 20160609
  Receipt Date: 20160609
  Transmission Date: 20160815
  Serious: Yes (Life-Threatening, Hospitalization)
  Sender: FDA-Public Use
  Company Number: None

PATIENT
  Age: 32 Year
  Sex: Male
  Weight: 80 kg

DRUGS (1)
  1. SEVOFLURANE. [Suspect]
     Active Substance: SEVOFLURANE
     Indication: ANAESTHESIA
     Dates: start: 20151013, end: 20151013

REACTIONS (5)
  - Hyperthermia malignant [None]
  - Tachycardia [None]
  - Hypercapnia [None]
  - Heart rate increased [None]
  - Blood potassium abnormal [None]

NARRATIVE: CASE EVENT DATE: 20151013
